FAERS Safety Report 9670154 (Version 1)
Quarter: 2013Q4

REPORT INFORMATION
  Report Type: Spontaneous
  Country: DK (occurrence: DK)
  Receive Date: 20131105
  Receipt Date: 20131105
  Transmission Date: 20140711
  Serious: Yes (Other)
  Sender: FDA-Public Use
  Company Number: PHHY2013DK123111

PATIENT
  Age: 37 Year
  Sex: Male

DRUGS (1)
  1. OMNITROPE [Suspect]
     Dosage: 3.3 MG/ML, UNK

REACTIONS (4)
  - Intentional drug misuse [Unknown]
  - Nausea [Recovered/Resolved]
  - Dizziness [Recovered/Resolved]
  - Hyperhidrosis [Recovered/Resolved]
